FAERS Safety Report 8841680 (Version 1)
Quarter: 2012Q4

REPORT INFORMATION
  Report Type: 
  Country: US (occurrence: US)
  Receive Date: 20121015
  Receipt Date: 20121015
  Transmission Date: 20130627
  Serious: Yes (Death)
  Sender: FDA-Public Use
  Company Number: US-ASTELLAS-2012US010127

PATIENT
  Age: 77 Year
  Sex: Female

DRUGS (2)
  1. PROGRAF [Suspect]
     Indication: TRANSPLANT
     Dosage: 3.5 mg, bid
     Route: 065
     Dates: start: 200109, end: 20120910
  2. PREDNISONE [Concomitant]
     Indication: PRODUCT USED FOR UNKNOWN INDICATION
     Dosage: 5 mg, UID/QD
     Route: 065
     Dates: start: 200109, end: 20120910

REACTIONS (2)
  - Cardiac failure congestive [Fatal]
  - Renal failure [Fatal]
